FAERS Safety Report 20127974 (Version 1)
Quarter: 2021Q4

REPORT INFORMATION
  Report Type: Report from Study
  Country: BR (occurrence: BR)
  Receive Date: 20211129
  Receipt Date: 20211129
  Transmission Date: 20220303
  Serious: Yes (Hospitalization, Other)
  Sender: FDA-Public Use
  Company Number: BR-ABBVIE-21K-020-4177436-00

PATIENT
  Sex: Female
  Weight: 80 kg

DRUGS (1)
  1. SKYRIZI [Suspect]
     Active Substance: RISANKIZUMAB-RZAA
     Indication: Psoriasis
     Route: 058
     Dates: start: 20201022

REACTIONS (9)
  - Pain [Recovering/Resolving]
  - Appendicitis [Recovering/Resolving]
  - Appendicitis perforated [Recovering/Resolving]
  - Colostomy [Recovered/Resolved with Sequelae]
  - Drain placement [Recovered/Resolved with Sequelae]
  - Infection [Recovering/Resolving]
  - Memory impairment [Not Recovered/Not Resolved]
  - Confusional state [Not Recovered/Not Resolved]
  - Procedural pain [Not Recovered/Not Resolved]

NARRATIVE: CASE EVENT DATE: 20210101
